FAERS Safety Report 9306303 (Version 3)
Quarter: 2013Q4

REPORT INFORMATION
  Report Type: Spontaneous
  Country: US (occurrence: None)
  Receive Date: 20130516
  Receipt Date: 20131212
  Transmission Date: 20140711
  Serious: No
  Sender: FDA-Public Use
  Company Number: 003-110

PATIENT
  Age: 29 Year
  Sex: Female

DRUGS (1)
  1. CROFAB [Suspect]
     Indication: SNAKE BITE
     Dosage: 62 VIALS TOTAL

REACTIONS (7)
  - Thrombocytopenia [None]
  - Oedema [None]
  - Ecchymosis [None]
  - Pain in extremity [None]
  - Sinus tachycardia [None]
  - Nervousness [None]
  - Oedema peripheral [None]
